FAERS Safety Report 4446152-9 (Version None)
Quarter: 2004Q3

REPORT INFORMATION
  Report Type: 
  Country: None (occurrence: None)
  Receive Date: 20040907
  Receipt Date: 20040823
  Transmission Date: 20050211
  Serious: Yes (Death)
  Sender: FDA-Public Use
  Company Number: ZICO001095

PATIENT
  Age: 42 Year
  Sex: Male
  Weight: 70.7611 kg

DRUGS (14)
  1. ZICONOTIDE [Suspect]
     Indication: PAIN
     Dosage: 4.8 MCG/HR INTRATHECAL
     Route: 037
     Dates: start: 20040526, end: 20040609
  2. FLOMAX [Concomitant]
  3. NEURONTIN [Concomitant]
  4. MARINOL [Concomitant]
  5. WELLBATRIN (AMFEBUTAMONE) [Concomitant]
  6. TOPRAL (SULTOPRIDE) [Concomitant]
  7. PROCRIT [Concomitant]
  8. LASIX [Concomitant]
  9. NALTREXONE SOLUTION (NALTREXONE SOLUTION) [Concomitant]
  10. VALIUM [Concomitant]
  11. PROTONIX [Concomitant]
  12. MS CONTIN [Concomitant]
  13. DILAUDID [Concomitant]
  14. CLONIDINE [Concomitant]

REACTIONS (7)
  - AMNESIA [None]
  - ATAXIA [None]
  - CARDIAC ARREST [None]
  - HYPERTENSION [None]
  - MONOPLEGIA [None]
  - PARAESTHESIA [None]
  - SPEECH DISORDER [None]
